FAERS Safety Report 5724130-7 (Version None)
Quarter: 2008Q2

REPORT INFORMATION
  Report Type: 
  Country: None (occurrence: None)
  Receive Date: 20080430
  Receipt Date: 20080404
  Transmission Date: 20081010
  Serious: No
  Sender: FDA-Public Use
  Company Number: US-BOEHRINGER INGELHEIM GMBH, GERMANY-2008-BP-05362BP

PATIENT
  Sex: Female

DRUGS (9)
  1. CATAPRES-TTS-1 [Suspect]
     Indication: HYPERTENSION
     Route: 061
  2. LIDODERM [Concomitant]
  3. ELAVIL [Concomitant]
  4. GABAPENTIN [Concomitant]
  5. TYL #3 [Concomitant]
  6. LORAZEPAM [Concomitant]
  7. CYMBALTA [Concomitant]
  8. FLEXERIL [Concomitant]
  9. AMBIEN [Concomitant]

REACTIONS (1)
  - RASH [None]
